FAERS Safety Report 25411748 (Version 1)
Quarter: 2025Q2

REPORT INFORMATION
  Report Type: Spontaneous
  Country: US (occurrence: US)
  Receive Date: 20250609
  Receipt Date: 20250609
  Transmission Date: 20250717
  Serious: No
  Sender: SPECGX
  Company Number: US-SPECGX-T202401637

PATIENT
  Age: 75 Year
  Sex: Male

DRUGS (4)
  1. ACETAMINOPHEN\HYDROCODONE [Suspect]
     Active Substance: ACETAMINOPHEN\HYDROCODONE
     Indication: Hyperaesthesia
     Route: 065
     Dates: start: 20231011
  2. ACETAMINOPHEN\HYDROCODONE [Suspect]
     Active Substance: ACETAMINOPHEN\HYDROCODONE
     Route: 065
     Dates: start: 20240726
  3. ACETAMINOPHEN\HYDROCODONE [Suspect]
     Active Substance: ACETAMINOPHEN\HYDROCODONE
     Route: 065
     Dates: start: 20240726
  4. ACETAMINOPHEN\HYDROCODONE [Suspect]
     Active Substance: ACETAMINOPHEN\HYDROCODONE
     Route: 065
     Dates: start: 20240726

REACTIONS (5)
  - Hypoaesthesia [Not Recovered/Not Resolved]
  - Drug tolerance decreased [Unknown]
  - Intentional product use issue [Unknown]
  - Product physical consistency issue [Unknown]
  - Drug effect less than expected [Not Recovered/Not Resolved]

NARRATIVE: CASE EVENT DATE: 20240726
